FAERS Safety Report 14941381 (Version 1)
Quarter: 2018Q2

REPORT INFORMATION
  Report Type: Report from Study
  Country: US (occurrence: US)
  Receive Date: 20180526
  Receipt Date: 20180526
  Transmission Date: 20180711
  Serious: Yes (Other)
  Sender: FDA-Public Use
  Company Number: US-AMGEN-USASL2018068870

PATIENT
  Age: 83 Year
  Sex: Female

DRUGS (1)
  1. REPATHA [Suspect]
     Active Substance: EVOLOCUMAB
     Indication: BLOOD CHOLESTEROL INCREASED
     Dosage: 140 MG, Q2WK
     Route: 065
     Dates: start: 20151030

REACTIONS (4)
  - Rheumatoid arthritis [Not Recovered/Not Resolved]
  - Eye swelling [Unknown]
  - Inappropriate schedule of drug administration [Unknown]
  - Erythema [Unknown]

NARRATIVE: CASE EVENT DATE: 201805
